FAERS Safety Report 15336268 (Version 1)
Quarter: 2018Q3

REPORT INFORMATION
  Report Type: Report from Study
  Country: US (occurrence: BR)
  Receive Date: 20180830
  Receipt Date: 20180830
  Transmission Date: 20181010
  Serious: Yes (Death, Other)
  Sender: FDA-Public Use
  Company Number: US-SUNOVION-2018SUN003351

PATIENT
  Sex: Male
  Weight: 60 kg

DRUGS (1)
  1. INDACATEROL AND GLYCOPYRROLATE [Suspect]
     Active Substance: GLYCOPYRROLATE\INDACATEROL MALEATE
     Indication: LUNG DISORDER
     Dosage: 1 DF (INDACATEROL 110UG, GLYCOPYRRONIUM BROMIDE 50 UG), QD
     Route: 055
     Dates: start: 2017

REACTIONS (1)
  - Lung neoplasm malignant [Fatal]
